FAERS Safety Report 12678348 (Version 1)
Quarter: 2016Q3

REPORT INFORMATION
  Report Type: Spontaneous
  Country: PE (occurrence: PE)
  Receive Date: 20160823
  Receipt Date: 20160823
  Transmission Date: 20161109
  Serious: Yes (Other)
  Sender: FDA-Public Use
  Company Number: PE-PFIZER INC-2016392137

PATIENT
  Age: 87 Year
  Sex: Male

DRUGS (1)
  1. CARDURA XL [Suspect]
     Active Substance: DOXAZOSIN MESYLATE
     Indication: RENAL DISORDER
     Dosage: 4 MG, 1X/DAY

REACTIONS (2)
  - Urinary tract infection bacterial [Not Recovered/Not Resolved]
  - Dysuria [Not Recovered/Not Resolved]
